FAERS Safety Report 16732035 (Version 2)
Quarter: 2021Q1

REPORT INFORMATION
  Report Type: Spontaneous
  Country: US (occurrence: US)
  Receive Date: 20190822
  Receipt Date: 20210315
  Transmission Date: 20210419
  Serious: Yes (Hospitalization, Other)
  Sender: FDA-Public Use
  Company Number: US-SHIRE-US201923686

PATIENT
  Sex: Female
  Weight: 88 kg

DRUGS (8)
  1. GATTEX [Suspect]
     Active Substance: TEDUGLUTIDE\WATER
     Indication: SHORT-BOWEL SYNDROME
     Dosage: 0.23 MILLILITER, 1X/DAY:QD, UNDER THE SKIN
     Route: 050
  2. GATTEX [Suspect]
     Active Substance: TEDUGLUTIDE\WATER
     Dosage: 2.3 MILLIGRAM
     Route: 058
  3. GATTEX [Suspect]
     Active Substance: TEDUGLUTIDE\WATER
     Indication: SHORT-BOWEL SYNDROME
     Dosage: 0.23 MILLILITER, 1X/DAY:QD, UNDER THE SKIN
     Route: 050
  4. GATTEX [Suspect]
     Active Substance: TEDUGLUTIDE\WATER
     Indication: SHORT-BOWEL SYNDROME
     Dosage: 0.23 MILLILITER, 1X/DAY:QD, UNDER THE SKIN
     Route: 050
  5. GATTEX [Suspect]
     Active Substance: TEDUGLUTIDE\WATER
     Dosage: 2.3 MILLIGRAM
     Route: 058
  6. GATTEX [Suspect]
     Active Substance: TEDUGLUTIDE\WATER
     Indication: SHORT-BOWEL SYNDROME
     Dosage: 0.23 MILLILITER, 1X/DAY:QD, UNDER THE SKIN
     Route: 050
  7. GATTEX [Suspect]
     Active Substance: TEDUGLUTIDE\WATER
     Dosage: 2.3 MILLIGRAM
     Route: 058
  8. GATTEX [Suspect]
     Active Substance: TEDUGLUTIDE\WATER
     Dosage: 2.3 MILLIGRAM
     Route: 058

REACTIONS (2)
  - Fluid replacement [Unknown]
  - Biopsy [Unknown]
